FAERS Safety Report 7366409-1 (Version None)
Quarter: 2011Q1

REPORT INFORMATION
  Report Type: 
  Country: None (occurrence: None)
  Receive Date: 20110317
  Receipt Date: 20110317
  Transmission Date: 20110831
  Serious: Yes (Hospitalization)
  Sender: FDA-Public Use
  Company Number: None

PATIENT
  Age: 69 Year
  Sex: Male
  Weight: 70.8 kg

DRUGS (1)
  1. FORMOTEROL FUMARATE [Suspect]
     Dosage: 12 MCG BID INHALE
     Route: 055
     Dates: start: 20100427, end: 20100528

REACTIONS (1)
  - HALLUCINATION [None]
